FAERS Safety Report 6316657-4 (Version None)
Quarter: 2009Q3

REPORT INFORMATION
  Report Type: 
  Country: None (occurrence: None)
  Receive Date: 20090820
  Receipt Date: 20090811
  Transmission Date: 20100115
  Serious: Yes (Other)
  Sender: FDA-Public Use
  Company Number: JP-PFIZER INC-2009245843

PATIENT
  Age: 56 Year

DRUGS (6)
  1. GABAPEN [Suspect]
     Indication: HYPOAESTHESIA
     Dosage: 400 MG, 1X/DAY
     Route: 048
  2. GABAPEN [Suspect]
     Indication: PAIN
  3. ATARAX [Suspect]
     Dosage: UNK
     Dates: end: 20090717
  4. DOPS [Concomitant]
     Dosage: UNK
     Route: 048
  5. ALLELOCK [Concomitant]
     Dosage: UNK
     Route: 048
  6. LIPITOR [Concomitant]
     Dosage: UNK
     Route: 048

REACTIONS (2)
  - DIALYSIS [None]
  - SOMNOLENCE [None]
